FAERS Safety Report 19971550 (Version 3)
Quarter: 2022Q2

REPORT INFORMATION
  Report Type: Report from Study
  Country: US (occurrence: US)
  Receive Date: 20211020
  Receipt Date: 20220603
  Transmission Date: 20220720
  Serious: No
  Sender: FDA-Public Use
  Company Number: US-NOVARTISTESTPH-NVSC2021US237209

PATIENT
  Age: 39 Year
  Sex: Female

DRUGS (1)
  1. KESIMPTA [Suspect]
     Active Substance: OFATUMUMAB
     Indication: Product used for unknown indication
     Dosage: 20 MG/ 0.4 ML
     Route: 065

REACTIONS (7)
  - Product dose omission issue [Unknown]
  - Cough [Unknown]
  - Device issue [Unknown]
  - Accidental exposure to product [Unknown]
  - Device dispensing error [Unknown]
  - Visual impairment [Unknown]
  - Tooth disorder [Unknown]

NARRATIVE: CASE EVENT DATE: 20211008
